FAERS Safety Report 5715494-9 (Version None)
Quarter: 2008Q2

REPORT INFORMATION
  Report Type: 
  Country: None (occurrence: None)
  Receive Date: 20080422
  Receipt Date: 20080407
  Transmission Date: 20081010
  Serious: Yes (Hospitalization, Other)
  Sender: FDA-Public Use
  Company Number: 2008S1004379

PATIENT

DRUGS (1)
  1. ALBUTEROL [Suspect]
     Dosage: INHALATION
     Route: 055

REACTIONS (3)
  - HYPERGLYCAEMIA [None]
  - HYPERVENTILATION [None]
  - METABOLIC ACIDOSIS [None]
